FAERS Safety Report 6474265-9 (Version None)
Quarter: 2009Q4

REPORT INFORMATION
  Report Type: 
  Country: None (occurrence: None)
  Receive Date: 20091204
  Receipt Date: 20091125
  Transmission Date: 20100525
  Serious: Yes (Hospitalization, Other)
  Sender: FDA-Public Use
  Company Number: PHEH2009US16231

PATIENT
  Sex: Male

DRUGS (6)
  1. EXJADE [Suspect]
     Indication: IRON OVERLOAD
     Dosage: 2000 MG, QD
     Route: 048
     Dates: start: 20091111
  2. EXJADE [Suspect]
     Indication: LYMPHATIC DISORDER
     Dosage: 500MG BID
     Dates: start: 20091101
  3. EXJADE [Suspect]
     Indication: BLOOD DISORDER
  4. COZAAR [Concomitant]
     Indication: HYPERTENSION
     Route: 048
  5. HYDROCHLOROTHIAZIDE [Concomitant]
     Indication: HYPERTENSION
     Dosage: UNK
     Route: 048
     Dates: end: 20091115
  6. SIMVASTATIN [Concomitant]
     Indication: BLOOD CHOLESTEROL INCREASED
     Route: 048

REACTIONS (7)
  - ANAEMIA [None]
  - DIARRHOEA [None]
  - FAECES DISCOLOURED [None]
  - HYPOTENSION [None]
  - OXYGEN SATURATION DECREASED [None]
  - RASH [None]
  - SYNCOPE [None]
